FAERS Safety Report 9866075 (Version 1)
Quarter: 2014Q1

REPORT INFORMATION
  Report Type: Spontaneous
  Country: US (occurrence: US)
  Receive Date: 20140203
  Receipt Date: 20140203
  Transmission Date: 20141002
  Serious: No
  Sender: FDA-Public Use
  Company Number: US-ALLERGAN-1315321US

PATIENT
  Age: 57 Year
  Sex: Female

DRUGS (7)
  1. RESTASIS [Suspect]
     Indication: DRY EYE
     Dosage: 2 GTT, BID
     Route: 047
     Dates: end: 201309
  2. CALCIUM [Concomitant]
     Indication: NUTRITIONAL SUPPLEMENTATION
     Dosage: UNK
  3. MULTIVITAMIN                       /00097801/ [Concomitant]
     Indication: NUTRITIONAL SUPPLEMENTATION
     Dosage: UNK
  4. SYNTHROID [Concomitant]
     Indication: HYPOTHYROIDISM
     Dosage: 0.01 MG, QD
     Route: 048
  5. REFRESH EYE ITCH RELIEF [Concomitant]
     Indication: DRY EYE
     Dosage: UNK
     Route: 047
  6. SYSTANE [Concomitant]
     Indication: DRY EYE
     Dosage: UNK
     Route: 047
  7. SYSTANE NIGHTTIME [Concomitant]
     Indication: DRY EYE
     Dosage: UNK UNK, QHS
     Route: 047

REACTIONS (5)
  - Eye pain [Not Recovered/Not Resolved]
  - Eye discharge [Not Recovered/Not Resolved]
  - Eye irritation [Not Recovered/Not Resolved]
  - Scleral hyperaemia [Not Recovered/Not Resolved]
  - Drug ineffective [Unknown]
